FAERS Safety Report 6972366-X (Version None)
Quarter: 2010Q3

REPORT INFORMATION
  Report Type: 
  Country: None (occurrence: None)
  Receive Date: 20100909
  Receipt Date: 20100906
  Transmission Date: 20110219
  Serious: Yes (Death, Other)
  Sender: FDA-Public Use
  Company Number: PHHY2010MX33515

PATIENT
  Sex: Female

DRUGS (1)
  1. FEMARA [Suspect]
     Indication: BREAST CANCER
     Dosage: 1 TABLET (2.5 MG) PER DAY
     Route: 048
     Dates: start: 20040125, end: 20040201

REACTIONS (2)
  - CARDIAC ARREST [None]
  - GASTRITIS [None]
